FAERS Safety Report 8130456-2 (Version None)
Quarter: 2012Q1

REPORT INFORMATION
  Report Type: 
  Country: None (occurrence: None)
  Receive Date: 20120210
  Receipt Date: 20120208
  Transmission Date: 20120608
  Serious: Yes (Hospitalization, Other)
  Sender: FDA-Public Use
  Company Number: US-MERCK-0908USA01685

PATIENT
  Age: 52 Year
  Sex: Female
  Weight: 54 kg

DRUGS (6)
  1. SYNTHROID [Concomitant]
     Indication: HYPOTHYROIDISM
     Route: 065
  2. FOSAMAX [Suspect]
     Indication: OSTEOPOROSIS
     Route: 048
     Dates: start: 20020101, end: 20060801
  3. FOSAMAX [Suspect]
     Route: 048
     Dates: start: 19990817, end: 20011201
  4. FOSAMAX [Suspect]
     Indication: CALCIUM DEFICIENCY
     Route: 048
     Dates: start: 20020101, end: 20060801
  5. FOSAMAX [Suspect]
     Route: 048
     Dates: start: 19990817, end: 20011201
  6. PREMARIN [Concomitant]
     Indication: HORMONE REPLACEMENT THERAPY
     Route: 048
     Dates: start: 19950112, end: 20060216

REACTIONS (27)
  - JOINT DISLOCATION [None]
  - OSTEONECROSIS OF JAW [None]
  - ANAEMIA [None]
  - GASTRITIS EROSIVE [None]
  - WEIGHT DECREASED [None]
  - FIBULA FRACTURE [None]
  - THERMAL BURN [None]
  - OSTEOMYELITIS [None]
  - INFLAMMATION [None]
  - ELECTROCARDIOGRAM ST SEGMENT ABNORMAL [None]
  - BONE DISORDER [None]
  - PULMONARY FIBROSIS [None]
  - LUNG NEOPLASM [None]
  - DIVERTICULUM [None]
  - ARTHROPATHY [None]
  - BILIARY DILATATION [None]
  - WITHDRAWAL BLEED [None]
  - PERICARDIAL EFFUSION [None]
  - JAW FRACTURE [None]
  - AORTIC VALVE INCOMPETENCE [None]
  - RED BLOOD CELL SEDIMENTATION RATE INCREASED [None]
  - IRON DEFICIENCY [None]
  - GASTROINTESTINAL DISORDER [None]
  - BLISTER [None]
  - LYMPH NODE PALPABLE [None]
  - CARDIAC MURMUR [None]
  - CERVICAL POLYP [None]
